FAERS Safety Report 14578844 (Version 3)
Quarter: 2018Q3

REPORT INFORMATION
  Report Type: Spontaneous
  Country: JP (occurrence: JP)
  Receive Date: 20180227
  Receipt Date: 20180717
  Transmission Date: 20181010
  Serious: Yes (Life-Threatening)
  Sender: FDA-Public Use
  Company Number: JP-BIOCRYST PHARMACEUTICALS, INC.-2018BCR00079

PATIENT
  Age: 87 Year
  Sex: Male

DRUGS (16)
  1. RAPIACTA [Suspect]
     Active Substance: PERAMIVIR
     Indication: INFLUENZA
     Dosage: UNK
     Route: 042
     Dates: start: 20180129
  2. NORVASC [Concomitant]
     Active Substance: AMLODIPINE BESYLATE
     Indication: CARDIAC FAILURE CHRONIC
     Dosage: 5 MG, 1X/DAY
     Dates: start: 20160205
  3. HUSCODE [Concomitant]
     Active Substance: CHLORPHENIRAMINE MALEAT\DIHYDROCODEINE PHOSPHATE\METHYLEPHEDRINE HYDROCHLORIDE, DL-
     Indication: INFLUENZA
     Dosage: UNK
     Dates: start: 20180129
  4. MICARDIS [Concomitant]
     Active Substance: TELMISARTAN
     Indication: HYPERTENSION
     Dosage: 20 MG, 1X/DAY
     Route: 048
     Dates: start: 20160205
  5. ACETAMINOPHEN. [Concomitant]
     Active Substance: ACETAMINOPHEN
     Indication: INFLUENZA
     Dosage: UNK
     Dates: start: 20180129
  6. BAYCARON [Concomitant]
     Active Substance: MEFRUSIDE
     Indication: HYPERTENSION
     Dosage: 25 MG, 1X/DAY
     Route: 048
     Dates: start: 20160205
  7. NORVASC [Concomitant]
     Active Substance: AMLODIPINE BESYLATE
     Indication: HYPERTENSION
  8. ACARBOSE OD [Concomitant]
     Indication: DIABETES MELLITUS
     Dosage: 900 MG, 1X/DAY
     Dates: start: 20160205
  9. BEZATOL SR [Concomitant]
     Active Substance: BEZAFIBRATE
     Indication: HYPERLIPIDAEMIA
     Dosage: 800 MG, 1X/DAY
     Dates: start: 20160205
  10. TAKEPRON [Concomitant]
     Active Substance: LANSOPRAZOLE
     Indication: GASTROOESOPHAGEAL REFLUX DISEASE
     Dosage: 15 MG, 1X/DAY
     Dates: start: 20160205
  11. DAONIL [Concomitant]
     Active Substance: GLYBURIDE
     Indication: DIABETES MELLITUS
     Dosage: 3.75 MG, 1X/DAY
     Dates: start: 20160205
  12. ARTIST [Concomitant]
     Active Substance: CARVEDILOL
     Indication: ANGINA PECTORIS
     Dosage: 5 MG, 1X/DAY
     Route: 048
     Dates: start: 20160205
  13. ZETIA [Concomitant]
     Active Substance: EZETIMIBE
     Indication: HYPERLIPIDAEMIA
     Dosage: 10 MG, 1X/DAY
     Route: 048
     Dates: start: 20160205
  14. BAYCARON [Concomitant]
     Active Substance: MEFRUSIDE
     Indication: CARDIAC FAILURE CHRONIC
  15. GLUCOBAY [Concomitant]
     Active Substance: ACARBOSE
     Indication: DIABETES MELLITUS
     Dosage: UNK
     Dates: start: 20171027
  16. MONTELUKAST [Concomitant]
     Active Substance: MONTELUKAST SODIUM
     Indication: INFLUENZA
     Dosage: UNK
     Dates: start: 20180129

REACTIONS (1)
  - Hepatic function abnormal [Unknown]

NARRATIVE: CASE EVENT DATE: 20180202
